FAERS Safety Report 18384005 (Version 1)
Quarter: 2020Q4

REPORT INFORMATION
  Report Type: Spontaneous
  Country: HU (occurrence: HU)
  Receive Date: 20201014
  Receipt Date: 20201014
  Transmission Date: 20210114
  Serious: Yes (Other)
  Sender: FDA-Public Use
  Company Number: HU-EAGLE PHARMACEUTICALS, INC.-HU-2020EAG000154

PATIENT

DRUGS (2)
  1. BENDAMUSTINE HYDROCHLORIDE. [Suspect]
     Active Substance: BENDAMUSTINE HYDROCHLORIDE
     Indication: HODGKIN^S DISEASE
     Dosage: 90 MG/M2, 1 TO 6 CYCLES, DAYS 1 AND 2 OF 21-DAY CYCLE, EVERY 4 WEEKS
     Route: 042
  2. BRENTUXIMAB VEDOTIN [Suspect]
     Active Substance: BRENTUXIMAB VEDOTIN
     Indication: HODGKIN^S DISEASE
     Dosage: 1.8 MG/KG, 1 TO 6 CYCLES, DAY 1 OF 21-DAY CYCLE, EVERY 4 WEEKS
     Route: 042

REACTIONS (1)
  - Neuropathy peripheral [Unknown]
